FAERS Safety Report 16106236 (Version 1)
Quarter: 2019Q1

REPORT INFORMATION
  Report Type: Spontaneous
  Country: JP (occurrence: JP)
  Receive Date: 20190322
  Receipt Date: 20190322
  Transmission Date: 20190418
  Serious: Yes (Death)
  Sender: FDA-Public Use
  Company Number: JP-ASTRAZENECA-2019SE44082

PATIENT
  Age: 72 Year
  Sex: Female

DRUGS (1)
  1. GEFITINIB. [Suspect]
     Active Substance: GEFITINIB
     Indication: NON-SMALL CELL LUNG CANCER STAGE IIIA
     Route: 048

REACTIONS (3)
  - Drug resistance [Fatal]
  - Malignant neoplasm progression [Fatal]
  - EGFR gene mutation [Fatal]
